FAERS Safety Report 24867857 (Version 2)
Quarter: 2025Q1

REPORT INFORMATION
  Report Type: Report from Study
  Country: US (occurrence: US)
  Receive Date: 20250121
  Receipt Date: 20250131
  Transmission Date: 20250409
  Serious: Yes (Other)
  Sender: ELI LILLY AND COMPANY
  Company Number: US-ELI_LILLY_AND_COMPANY-US202501012394

PATIENT
  Age: 67 Year
  Sex: Female

DRUGS (4)
  1. VERZENIO [Suspect]
     Active Substance: ABEMACICLIB
     Indication: Breast cancer
     Dosage: 150 MG, BID
     Route: 048
     Dates: start: 20240820
  2. LETROZOLE [Suspect]
     Active Substance: LETROZOLE
     Indication: Neoplasm malignant
     Route: 065
  3. NORCO [Concomitant]
     Active Substance: ACETAMINOPHEN\HYDROCODONE BITARTRATE
     Indication: Product used for unknown indication
  4. ELIQUIS [Concomitant]
     Active Substance: APIXABAN
     Indication: Product used for unknown indication

REACTIONS (6)
  - Thrombosis [Not Recovered/Not Resolved]
  - Malignant neoplasm progression [Unknown]
  - Haemoglobin decreased [Recovered/Resolved]
  - Arthropathy [Recovering/Resolving]
  - Back pain [Not Recovered/Not Resolved]
  - COVID-19 [Recovered/Resolved]

NARRATIVE: CASE EVENT DATE: 20240801
